FAERS Safety Report 7502290-5 (Version None)
Quarter: 2011Q2

REPORT INFORMATION
  Report Type: 
  Country: None (occurrence: None)
  Receive Date: 20110525
  Receipt Date: 20100124
  Transmission Date: 20111010
  Serious: Yes (Death, Hospitalization, Other)
  Sender: FDA-Public Use
  Company Number: US-BAYER-201012130NA

PATIENT
  Age: 63 Year
  Sex: Male
  Weight: 96 kg

DRUGS (22)
  1. HEPARIN [Concomitant]
     Dosage: UNK
     Dates: start: 19990404
  2. EFFEXOR [Concomitant]
     Dosage: 37.5 MG, BID
  3. FRESH FROZEN PLASMA [Concomitant]
     Dosage: 4 U, UNK
     Route: 042
     Dates: start: 19990404
  4. LANOXIN [Concomitant]
     Dosage: 0.125 MG, QD
  5. LIPITOR [Concomitant]
     Dosage: 20 MG, BID
  6. LOPRESSOR [Concomitant]
     Dosage: 12.5 MG, BID
  7. MANNITOL [Concomitant]
     Dosage: UNK
     Dates: start: 19990404
  8. EPINEPHRINE [Concomitant]
     Dosage: UNK
     Dates: start: 19990404
  9. ALLOPURINOL [Concomitant]
     Dosage: 100 MG, QD
  10. RED BLOOD CELLS [Concomitant]
     Dosage: 4 U, UNK
     Route: 042
     Dates: start: 19990404
  11. TRASYLOL [Suspect]
     Indication: HEART TRANSPLANT
     Dosage: 50 CC/HR
     Route: 042
     Dates: start: 19990404, end: 19990405
  12. COUMADIN [Concomitant]
     Dosage: 0.5 MG, QD
  13. COUMADIN [Concomitant]
     Dosage: 10 MG, THRUSDAY
  14. CLONIDINE [Concomitant]
     Dosage: 0.2 MG, QD
  15. DOPAMINE HCL [Concomitant]
     Dosage: UNK
     Dates: start: 19990404
  16. ACETYLSALICYLIC ACID SRT [Concomitant]
     Dosage: 325 MG, QD
  17. AMICAR [Concomitant]
     Dosage: 1 GRAM/HR X 5 HOURS
     Dates: start: 19990404
  18. NORVASC [Concomitant]
     Dosage: 2.5 MG, QD
  19. NITROGLYCERIN [Concomitant]
     Dosage: 0.4 MG, PRN
  20. LASIX [Concomitant]
     Dosage: UNK
     Dates: start: 19990404
  21. MILRINONE [Concomitant]
     Dosage: UNK
     Dates: start: 19990404
  22. PLATELETS [Concomitant]
     Dosage: 10 U, UNK
     Route: 042
     Dates: start: 19990404

REACTIONS (14)
  - RENAL FAILURE [None]
  - UNEVALUABLE EVENT [None]
  - MULTI-ORGAN FAILURE [None]
  - PAIN [None]
  - RENAL IMPAIRMENT [None]
  - DEATH [None]
  - EMOTIONAL DISTRESS [None]
  - ANXIETY [None]
  - ANHEDONIA [None]
  - RENAL INJURY [None]
  - CEREBROVASCULAR ACCIDENT [None]
  - FEAR [None]
  - INJURY [None]
  - STRESS [None]
